FAERS Safety Report 25079060 (Version 3)
Quarter: 2025Q3

REPORT INFORMATION
  Report Type: Report from Study
  Country: CA (occurrence: CA)
  Receive Date: 20250314
  Receipt Date: 20250704
  Transmission Date: 20251021
  Serious: Yes (Other)
  Sender: JOHNSON AND JOHNSON
  Company Number: CA-JNJFOC-20250322459

PATIENT
  Age: 12 Year
  Sex: Male

DRUGS (1)
  1. REMICADE [Suspect]
     Active Substance: INFLIXIMAB
     Indication: Crohn^s disease
     Dosage: DOSE: 100 MG
     Route: 041
     Dates: start: 20240417

REACTIONS (5)
  - Infusion related reaction [Recovered/Resolved]
  - Muscular weakness [Recovered/Resolved]
  - Hypokinesia [Recovered/Resolved]
  - Drug specific antibody [Unknown]
  - Therapy cessation [Unknown]

NARRATIVE: CASE EVENT DATE: 20250306
